FAERS Safety Report 21669366 (Version 1)
Quarter: 2022Q4

REPORT INFORMATION
  Report Type: Spontaneous
  Country: US (occurrence: None)
  Receive Date: 20221201
  Receipt Date: 20221201
  Transmission Date: 20230113
  Serious: Yes (unspecified)
  Sender: FDA-Public Use
  Company Number: None

PATIENT
  Age: 35 Year
  Sex: Male
  Weight: 73.8 kg

DRUGS (2)
  1. STELARA [Suspect]
     Active Substance: USTEKINUMAB
     Indication: Crohn^s disease
     Dosage: OTHER FREQUENCY : INFUSE OVER 1 HR;?
     Route: 042
     Dates: start: 20221103, end: 20221103
  2. STELARA [Suspect]
     Active Substance: USTEKINUMAB
     Indication: Fistula

REACTIONS (4)
  - Cough [None]
  - Flushing [None]
  - Dyspnoea [None]
  - Infusion related reaction [None]

NARRATIVE: CASE EVENT DATE: 20221103
